FAERS Safety Report 13542701 (Version 1)
Quarter: 2017Q2

REPORT INFORMATION
  Report Type: Spontaneous
  Country: US (occurrence: US)
  Receive Date: 20170512
  Receipt Date: 20170512
  Transmission Date: 20170830
  Serious: Yes (Life-Threatening, Hospitalization)
  Sender: FDA-Public Use
  Company Number: US-ROCHE-778738

PATIENT
  Age: 64 Year
  Sex: Female
  Weight: 100.2 kg

DRUGS (5)
  1. GEMZAR [Concomitant]
     Active Substance: GEMCITABINE HYDROCHLORIDE
     Route: 065
     Dates: start: 20110405, end: 20110503
  2. GEMZAR [Concomitant]
     Active Substance: GEMCITABINE HYDROCHLORIDE
     Route: 065
  3. AVASTIN [Suspect]
     Active Substance: BEVACIZUMAB
     Indication: MALIGNANT PERITONEAL NEOPLASM
     Route: 042
     Dates: start: 201009, end: 20110505
  4. CARBOPLATIN. [Concomitant]
     Active Substance: CARBOPLATIN
     Route: 065
  5. TAXOTERE [Concomitant]
     Active Substance: DOCETAXEL
     Route: 065

REACTIONS (1)
  - Gastrointestinal perforation [Unknown]

NARRATIVE: CASE EVENT DATE: 20110505
